FAERS Safety Report 15167363 (Version 1)
Quarter: 2018Q3

REPORT INFORMATION
  Report Type: Spontaneous
  Country: ES (occurrence: ES)
  Receive Date: 20180719
  Receipt Date: 20180719
  Transmission Date: 20181010
  Serious: Yes (Hospitalization, Other)
  Sender: FDA-Public Use
  Company Number: ES-TEVA-2018-ES-928497

PATIENT
  Age: 73 Year
  Sex: Male

DRUGS (6)
  1. DICLOFENAC [Suspect]
     Active Substance: DICLOFENAC
     Indication: OSTEITIS
     Route: 048
     Dates: start: 20171228, end: 20180118
  2. AMLODIPINO CINFA 5 MG COMPRIMIDOS EFG , 30 COMPRIMIDOS [Concomitant]
     Dosage: 5 MILLIGRAM DAILY;
     Route: 048
     Dates: start: 20111219
  3. SINTROM [Suspect]
     Active Substance: ACENOCOUMAROL
     Dosage: SPL
     Route: 048
     Dates: start: 20150323, end: 20180118
  4. OMEPRAZOL CINFAMED 20 MG CAPSULAS DURAS GASTRORESISTENTES EFG , 28 C?P [Concomitant]
     Dosage: 20 MILLIGRAM DAILY;
     Route: 048
     Dates: start: 20111219
  5. ENALAPRIL/HIDROCLOROTIAZIDA CINFA 20/12,5 MG COMPRIMIDOS EFG , 28 COMP [Concomitant]
     Dosage: 1 DOSAGE FORMS DAILY;
     Route: 048
     Dates: start: 20111219
  6. ALOPURINOL CINFA 100 MG COMPRIMIDOS EFG, 100 COMPRIMIDOS [Concomitant]
     Dosage: 100 MILLIGRAM DAILY;
     Route: 048
     Dates: start: 20120209

REACTIONS (3)
  - Drug interaction [Unknown]
  - Haematochezia [Recovered/Resolved]
  - Duodenal ulcer [Recovered/Resolved]

NARRATIVE: CASE EVENT DATE: 20180118
